FAERS Safety Report 17651407 (Version 1)
Quarter: 2020Q2

REPORT INFORMATION
  Report Type: Spontaneous
  Country: US (occurrence: US)
  Receive Date: 20200409
  Receipt Date: 20200409
  Transmission Date: 20200713
  Serious: Yes (Hospitalization)
  Sender: FDA-Public Use
  Company Number: None

PATIENT
  Age: 66 Year
  Sex: Male
  Weight: 88.9 kg

DRUGS (2)
  1. CARBOPLATIN (CARBOPLATIN 150MG/VIL INJ) [Suspect]
     Active Substance: CARBOPLATIN
     Indication: NON-SMALL CELL LUNG CANCER
     Dosage: ?          OTHER STRENGTH:150 MG/VIL;?FREQUENCY: OTHER?
     Route: 042
     Dates: start: 20181115
  2. PEMETREXED (PEMETREXED 500MG/VIL INJ) [Suspect]
     Active Substance: PEMETREXED
     Indication: NON-SMALL CELL LUNG CANCER
     Dosage: ?          OTHER STRENGTH:500 MG/VIL;?FREQUENCY: OTHER?
     Route: 042
     Dates: start: 20181115

REACTIONS (5)
  - Haemoglobin decreased [None]
  - Bone marrow failure [None]
  - Anaemia [None]
  - Platelet count decreased [None]
  - Thrombocytopenia [None]

NARRATIVE: CASE EVENT DATE: 20190309
